FAERS Safety Report 12914651 (Version 1)
Quarter: 2016Q4

REPORT INFORMATION
  Report Type: Spontaneous
  Country: US (occurrence: US)
  Receive Date: 20161106
  Receipt Date: 20161106
  Transmission Date: 20170207
  Serious: No
  Sender: FDA-Public Use
  Company Number: US-RELYPSA-RLY2016003268

PATIENT
  Age: 78 Year
  Sex: Male

DRUGS (9)
  1. JANUVIA [Concomitant]
     Active Substance: SITAGLIPTIN PHOSPHATE
     Dosage: 50 MG, QD
  2. VELTASSA [Suspect]
     Active Substance: PATIROMER
     Indication: BLOOD POTASSIUM INCREASED
     Dosage: 25.2 G, QD
     Route: 048
     Dates: start: 201609
  3. GLIPIZIDE. [Concomitant]
     Active Substance: GLIPIZIDE
     Dosage: 20 MG, BID
  4. PLAVIX [Concomitant]
     Active Substance: CLOPIDOGREL BISULFATE
     Dosage: 75 MG, UNK
  5. SIMVASTATIN. [Concomitant]
     Active Substance: SIMVASTATIN
     Dosage: 10 MG, QD
  6. VELTASSA [Suspect]
     Active Substance: PATIROMER
     Dosage: 8.4 G, QD
     Route: 048
     Dates: start: 2016, end: 201609
  7. ATENOLOL. [Concomitant]
     Active Substance: ATENOLOL
     Dosage: 25 MG, QD
  8. LANTUS [Concomitant]
     Active Substance: INSULIN GLARGINE
     Dosage: 12 U, QD
  9. NIFEDIPINE. [Concomitant]
     Active Substance: NIFEDIPINE
     Dosage: 60 MG, QD

REACTIONS (1)
  - Constipation [Recovered/Resolved]

NARRATIVE: CASE EVENT DATE: 20161009
